FAERS Safety Report 6357859-0 (Version None)
Quarter: 2009Q3

REPORT INFORMATION
  Report Type: 
  Country: None (occurrence: None)
  Receive Date: 20090916
  Receipt Date: 20090826
  Transmission Date: 20100115
  Serious: Yes (Other)
  Sender: FDA-Public Use
  Company Number: GB-ROCHE-653799

PATIENT
  Sex: Male

DRUGS (1)
  1. TAMIFLU [Suspect]
     Indication: DRUG USE FOR UNKNOWN INDICATION
     Route: 065
     Dates: start: 20090701, end: 20090701

REACTIONS (5)
  - HALLUCINATION [None]
  - ILLOGICAL THINKING [None]
  - MENTAL DISORDER [None]
  - NYSTAGMUS [None]
  - TREMOR [None]
